FAERS Safety Report 6107180-0 (Version None)
Quarter: 2009Q1

REPORT INFORMATION
  Report Type: 
  Country: None (occurrence: None)
  Receive Date: 20090305
  Receipt Date: 20090305
  Transmission Date: 20090719
  Serious: Yes (Other)
  Sender: FDA-Public Use
  Company Number: None

PATIENT
  Age: 29 Year
  Sex: Female
  Weight: 115.2136 kg

DRUGS (1)
  1. COMBI RX TAB ETH [Suspect]
     Indication: PREGNANCY
     Dosage: 1 TABLET 1X PER DAY 12/4 - (SOMETIME IN/AFTER JAN)

REACTIONS (2)
  - ABORTION SPONTANEOUS [None]
  - DRUG EXPOSURE DURING PREGNANCY [None]
